FAERS Safety Report 25245725 (Version 1)
Quarter: 2025Q2

REPORT INFORMATION
  Report Type: Spontaneous
  Country: US (occurrence: None)
  Receive Date: 20250427
  Receipt Date: 20250427
  Transmission Date: 20250717
  Serious: No
  Sender: FDA-CTU
  Company Number: None

PATIENT
  Age: 75 Year
  Sex: Female
  Weight: 63.9 kg

DRUGS (8)
  1. ELIQUIS [Suspect]
     Active Substance: APIXABAN
     Indication: Factor V Leiden mutation
     Dates: start: 20250306, end: 20250421
  2. LEVOTHYROXINE [Concomitant]
     Active Substance: LEVOTHYROXINE
  3. LIOTHYRONINE [Concomitant]
     Active Substance: LIOTHYRONINE
  4. COUMADIN [Concomitant]
     Active Substance: WARFARIN SODIUM
  5. BACLOFEN [Concomitant]
     Active Substance: BACLOFEN
  6. VITAMIN D [Concomitant]
     Active Substance: VITAMIN D NOS
  7. VITAMINS [Concomitant]
     Active Substance: VITAMINS
  8. TYLENOL [Concomitant]
     Active Substance: ACETAMINOPHEN

REACTIONS (3)
  - Arthralgia [None]
  - Muscle spasticity [None]
  - Heart rate irregular [None]

NARRATIVE: CASE EVENT DATE: 20250306
